FAERS Safety Report 5742048-0 (Version None)
Quarter: 2008Q2

REPORT INFORMATION
  Report Type: 
  Country: None (occurrence: None)
  Receive Date: 20080519
  Receipt Date: 20080513
  Transmission Date: 20081010
  Serious: Yes (Disabling, Other)
  Sender: FDA-Public Use
  Company Number: GB-MERCK-0805GBR00070

PATIENT
  Age: 62 Year
  Sex: Female
  Weight: 104 kg

DRUGS (19)
  1. ZOCOR [Suspect]
     Indication: BLOOD CHOLESTEROL INCREASED
     Route: 048
     Dates: start: 20080306, end: 20080430
  2. ALVERINE CITRATE [Concomitant]
     Route: 065
     Dates: start: 20050517
  3. BECLOMETHASONE DIPROPIONATE [Concomitant]
     Route: 065
     Dates: start: 20010205
  4. CLOPIDOGREL BISULFATE [Concomitant]
     Route: 065
     Dates: start: 20080114
  5. ACETAMINOPHEN AND CODEINE PHOSPHATE [Concomitant]
     Route: 065
     Dates: start: 20050517
  6. DOTHIEPIN HYDROCHLORIDE [Concomitant]
     Route: 065
     Dates: start: 20010205
  7. FUROSEMIDE [Concomitant]
     Route: 065
     Dates: start: 20050617
  8. GABAPENTIN [Concomitant]
     Route: 065
     Dates: start: 20010723
  9. IVABRADINE [Concomitant]
     Route: 065
     Dates: start: 20080114
  10. LACTULOSE [Concomitant]
     Route: 065
     Dates: start: 20050517
  11. LEVOTHYROXINE SODIUM [Concomitant]
     Route: 065
     Dates: start: 20010205
  12. MINOXIDIL [Concomitant]
     Route: 065
     Dates: start: 20060424
  13. NICORANDIL [Concomitant]
     Route: 065
     Dates: start: 20080128
  14. OMEPRAZOLE [Concomitant]
     Route: 065
     Dates: start: 20010205
  15. OXYCODONE HYDROCHLORIDE [Concomitant]
     Route: 065
     Dates: start: 20020128
  16. ALBUTEROL [Concomitant]
     Route: 065
     Dates: start: 20011106
  17. SALMETEROL XINAFOATE [Concomitant]
     Route: 065
     Dates: start: 20070510
  18. SPIRONOLACTONE [Concomitant]
     Route: 065
     Dates: start: 20060407
  19. CLOBETASONE BUTYRATE AND NYSTATIN AND OXYTETRACYCLINE CALCIUM [Concomitant]
     Route: 065
     Dates: start: 20031007

REACTIONS (1)
  - MYOSITIS [None]
